FAERS Safety Report 11207702 (Version 2)
Quarter: 2016Q1

REPORT INFORMATION
  Report Type: Spontaneous
  Country: US (occurrence: US)
  Receive Date: 20150622
  Receipt Date: 20160108
  Transmission Date: 20160525
  Serious: No
  Sender: FDA-Public Use
  Company Number: US-ABBVIE-15P-163-1398688-00

PATIENT
  Sex: Female

DRUGS (1)
  1. VIEKIRA PAK [Suspect]
     Active Substance: DASABUVIR\OMBITASVIR\PARITAPREVIR\RITONAVIR
     Indication: HEPATITIS C
     Route: 048

REACTIONS (11)
  - Scratch [Unknown]
  - Blood caffeine increased [Unknown]
  - Hepatitis [Unknown]
  - Fatigue [Not Recovered/Not Resolved]
  - Weight increased [Recovering/Resolving]
  - Somnolence [Unknown]
  - Gastrointestinal sounds abnormal [Unknown]
  - Irritability [Recovering/Resolving]
  - Blood sodium increased [Unknown]
  - Ocular hyperaemia [Unknown]
  - Yawning [Unknown]
